FAERS Safety Report 6660612-1 (Version None)
Quarter: 2010Q1

REPORT INFORMATION
  Report Type: 
  Country: None (occurrence: None)
  Receive Date: 20100331
  Receipt Date: 20100322
  Transmission Date: 20100710
  Serious: Yes (Hospitalization)
  Sender: FDA-Public Use
  Company Number: US-WYE-H13409110

PATIENT
  Sex: Female
  Weight: 59.02 kg

DRUGS (1)
  1. PRISTIQ [Suspect]
     Indication: GENERALISED ANXIETY DISORDER
     Route: 048
     Dates: start: 20091020, end: 20091222

REACTIONS (3)
  - CONSTIPATION [None]
  - FAECALOMA [None]
  - MEDICATION RESIDUE [None]
